FAERS Safety Report 13452650 (Version 2)
Quarter: 2017Q2

REPORT INFORMATION
  Report Type: Spontaneous
  Country: US (occurrence: US)
  Receive Date: 20170418
  Receipt Date: 20170607
  Transmission Date: 20170830
  Serious: No
  Sender: FDA-Public Use
  Company Number: US-GLAXOSMITHKLINE-US2017051807

PATIENT
  Sex: Female

DRUGS (1)
  1. ADVAIR DISKUS [Suspect]
     Active Substance: FLUTICASONE PROPIONATE\SALMETEROL XINAFOATE
     Dosage: 1 PUFF(S), U
     Route: 055

REACTIONS (6)
  - Chest pain [Unknown]
  - Oral pain [Unknown]
  - Product quality issue [Unknown]
  - Medication residue present [Unknown]
  - Ill-defined disorder [Unknown]
  - Dysgeusia [Unknown]
